FAERS Safety Report 7048326-X (Version None)
Quarter: 2010Q4

REPORT INFORMATION
  Report Type: 
  Country: None (occurrence: None)
  Receive Date: 20101015
  Receipt Date: 20101007
  Transmission Date: 20110411
  Serious: Yes (Hospitalization, Other)
  Sender: FDA-Public Use
  Company Number: US-US-EMD SERONO, INC.-7015620

PATIENT
  Sex: Female
  Weight: 70 kg

DRUGS (5)
  1. REBIF [Suspect]
     Indication: MULTIPLE SCLEROSIS
     Route: 058
     Dates: start: 20100527
  2. OXYCODONE HCL [Concomitant]
     Indication: PAIN
  3. XANAX [Concomitant]
     Indication: ANXIETY
  4. ADVIL [Concomitant]
     Indication: PREMEDICATION
     Dates: start: 20100101
  5. TYLENOL [Concomitant]
     Dates: start: 20100101

REACTIONS (8)
  - ARTERIOSCLEROSIS [None]
  - BLOOD CHOLESTEROL INCREASED [None]
  - BLOOD PRESSURE INCREASED [None]
  - INJECTION SITE REACTION [None]
  - MULTIPLE SCLEROSIS RELAPSE [None]
  - PAIN [None]
  - PYREXIA [None]
  - STAPHYLOCOCCAL INFECTION [None]
